FAERS Safety Report 7989770-3 (Version None)
Quarter: 2011Q4

REPORT INFORMATION
  Report Type: 
  Country: None (occurrence: None)
  Receive Date: 20111219
  Receipt Date: 20110323
  Transmission Date: 20120403
  Serious: No
  Sender: FDA-Public Use
  Company Number: US-ASTRAZENECA-2011SE16595

PATIENT
  Age: 79 Year
  Sex: Female

DRUGS (4)
  1. ANTIDIABETICS [Concomitant]
     Indication: DIABETES MELLITUS
  2. CRESTOR [Suspect]
     Route: 048
     Dates: start: 20090101, end: 20100101
  3. ANTIHYPERTENSIVES [Concomitant]
     Indication: HYPERTENSION
  4. CRESTOR [Suspect]
     Route: 048
     Dates: start: 20100101

REACTIONS (3)
  - PARAESTHESIA [None]
  - MUSCLE SPASMS [None]
  - WRONG TECHNIQUE IN DRUG USAGE PROCESS [None]
